FAERS Safety Report 21798344 (Version 1)
Quarter: 2022Q4

REPORT INFORMATION
  Report Type: Spontaneous
  Country: US (occurrence: None)
  Receive Date: 20221229
  Receipt Date: 20221229
  Transmission Date: 20230113
  Serious: Yes (Hospitalization)
  Sender: FDA-Public Use
  Company Number: None

PATIENT
  Sex: Male

DRUGS (1)
  1. RETEVMO [Suspect]
     Active Substance: SELPERCATINIB
     Dosage: FREQUENCY : TWICE A DAY;?
     Route: 048

REACTIONS (9)
  - Product use issue [None]
  - Manufacturing product shipping issue [None]
  - Withdrawal syndrome [None]
  - Vomiting [None]
  - Dizziness [None]
  - Diarrhoea [None]
  - Nausea [None]
  - Hypophagia [None]
  - Dehydration [None]
